FAERS Safety Report 10160911 (Version 3)
Quarter: 2015Q4

REPORT INFORMATION
  Report Type: Report from Study
  Country: DE (occurrence: JP)
  Receive Date: 20140508
  Receipt Date: 20151023
  Transmission Date: 20160304
  Serious: Yes (Death, Hospitalization)
  Sender: FDA-Public Use
  Company Number: JP-FRI-1000066940

PATIENT
  Age: 91 Year
  Sex: Female
  Weight: 65 kg

DRUGS (2)
  1. REMINYL [Concomitant]
     Active Substance: GALANTAMINE
     Dates: start: 20130717
  2. MEMANTINE (OPEN-LABEL) [Suspect]
     Active Substance: MEMANTINE
     Indication: DEMENTIA ALZHEIMER^S TYPE
     Dosage: 5 MG
     Route: 048
     Dates: start: 20121121, end: 20140128

REACTIONS (1)
  - Pneumonia [Fatal]

NARRATIVE: CASE EVENT DATE: 20140128
